FAERS Safety Report 5023202-2 (Version None)
Quarter: 2006Q2

REPORT INFORMATION
  Report Type: 
  Country: None (occurrence: None)
  Receive Date: 20060605
  Receipt Date: 20060516
  Transmission Date: 20061013
  Serious: Yes (Hospitalization, Other)
  Sender: FDA-Public Use
  Company Number: SI200605004004

PATIENT
  Age: 39 Year
  Sex: Female
  Weight: 62 kg

DRUGS (1)
  1. HUMALOG [Suspect]
     Dosage: 300 U, SUBCUTANEOUS
     Route: 058

REACTIONS (8)
  - BLOOD POTASSIUM DECREASED [None]
  - BODY TEMPERATURE DECREASED [None]
  - COMA [None]
  - HEART RATE INCREASED [None]
  - HYPOGLYCAEMIA [None]
  - INTENTIONAL OVERDOSE [None]
  - NEUROLOGICAL SYMPTOM [None]
  - SUICIDE ATTEMPT [None]
